FAERS Safety Report 7523634-4 (Version None)
Quarter: 2011Q2

REPORT INFORMATION
  Report Type: 
  Country: None (occurrence: None)
  Receive Date: 20110601
  Receipt Date: 20110601
  Transmission Date: 20111010
  Serious: Yes (Hospitalization)
  Sender: FDA-Public Use
  Company Number: None

PATIENT
  Age: 45 Year
  Sex: Male
  Weight: 169.4 kg

DRUGS (7)
  1. LISINOPRIL [Suspect]
     Indication: HYPERTENSION
     Dosage: 10 MG DAILY ORALLY
     Route: 048
     Dates: start: 20100419
  2. PAXIL [Concomitant]
  3. SOMA [Concomitant]
  4. NIFEDIPINE [Concomitant]
  5. HYDROCODONE BITARTRATE AND ACETAMINOPHEN [Concomitant]
  6. HYDRALAZINE HCL [Suspect]
     Indication: HYPERTENSION
     Dosage: 100MG TWICE DAILY ORALLY
     Route: 048
     Dates: start: 20100415
  7. TRIAMTERENE AND HYDROCHLOROTHIAZIDE [Concomitant]

REACTIONS (7)
  - TACHYCARDIA [None]
  - CHEST PAIN [None]
  - BLOOD PRESSURE INCREASED [None]
  - ANXIETY [None]
  - TREATMENT NONCOMPLIANCE [None]
  - HEADACHE [None]
  - ANGIOEDEMA [None]
